FAERS Safety Report 8847732 (Version 1)
Quarter: 2012Q4

REPORT INFORMATION
  Report Type: 
  Country: NL (occurrence: NL)
  Receive Date: 20121018
  Receipt Date: 20121018
  Transmission Date: 20130627
  Serious: Yes (Hospitalization)
  Sender: FDA-Public Use
  Company Number: NL-PFIZER INC-2012254605

PATIENT
  Age: 57 Year
  Sex: Male
  Weight: 121 kg

DRUGS (12)
  1. GENOTROPIN [Suspect]
     Dosage: 0.3 mg, 7/wk
     Route: 058
     Dates: start: 20061123
  2. ASPIRIN [Concomitant]
     Dosage: UNK
     Dates: start: 20041101
  3. SUSTANON [Concomitant]
     Indication: BLOOD LUTEINISING HORMONE DECREASED
     Dosage: UNK
     Dates: start: 20050301
  4. SUSTANON [Concomitant]
     Indication: BLOOD FOLLICLE STIMULATING HORMONE DECREASED
  5. DEHYDROEPIANDROSTERONE [Concomitant]
     Indication: BLOOD CORTICOTROPHIN DECREASED
     Dosage: UNK
     Dates: start: 20050501, end: 20081218
  6. CORTISONE ACETATE [Concomitant]
     Indication: BLOOD CORTICOTROPHIN DECREASED
     Dosage: UNK
     Dates: start: 20041015, end: 20081218
  7. CITALOPRAM [Concomitant]
     Indication: DEPRESSION
     Dosage: UNK
     Dates: start: 20071129
  8. OMEPRAZOL [Concomitant]
     Indication: GASTRIC DISORDER
     Dosage: UNK
     Dates: start: 20071129
  9. ROPINIROL [Concomitant]
     Indication: DYSKINESIA
     Dosage: UNK
     Dates: start: 20071129, end: 20081218
  10. ROPINIROL [Concomitant]
     Indication: PARKINSONISM
  11. VITAMIN B [Concomitant]
     Indication: VITAMIN B COMPLEX DEFICIENCY
     Dosage: UNK
     Dates: start: 20071129, end: 20081218
  12. LEVOTHYROXINE [Concomitant]
     Indication: HYPOTHYROIDISM
     Dosage: UNK
     Dates: start: 20041101

REACTIONS (1)
  - Adrenal disorder [Unknown]
